FAERS Safety Report 12278314 (Version 2)
Quarter: 2016Q2

REPORT INFORMATION
  Report Type: Spontaneous
  Country: IT (occurrence: IT)
  Receive Date: 20160418
  Receipt Date: 20160420
  Transmission Date: 20160815
  Serious: Yes (Hospitalization)
  Sender: FDA-Public Use
  Company Number: IT-TEVA-651996ACC

PATIENT
  Age: 73 Year
  Sex: Male

DRUGS (2)
  1. ETOPOSIDE TEVA - 50 ML 20 MG/ML - TEVA PHARMA B.V. [Suspect]
     Active Substance: ETOPOSIDE
     Indication: SQUAMOUS CELL CARCINOMA OF LUNG
     Dosage: 50 MG/M2 CYCLICAL
     Route: 042
     Dates: start: 20160307, end: 20160311
  2. CISPLATINO SANDOZ  - 1 MG/ML CONCENTRATO PER SOLUZIONE PER INFUSIONE [Suspect]
     Active Substance: CISPLATIN
     Indication: SQUAMOUS CELL CARCINOMA OF LUNG
     Dosage: 50 MG/M2 CYCLICAL
     Route: 042
     Dates: start: 20160307, end: 20160314

REACTIONS (6)
  - Pyrexia [Recovering/Resolving]
  - Pancytopenia [Recovering/Resolving]
  - Stomatitis [Recovering/Resolving]
  - Dyspnoea [Recovering/Resolving]
  - Asthenia [Recovering/Resolving]
  - Diarrhoea [Recovering/Resolving]

NARRATIVE: CASE EVENT DATE: 20160322
